FAERS Safety Report 8348685 (Version 5)
Quarter: 2013Q2

REPORT INFORMATION
  Report Type: Report from Study
  Country: CA (occurrence: CA)
  Receive Date: 20120123
  Receipt Date: 20130408
  Transmission Date: 20140414
  Serious: Yes (Hospitalization)
  Sender: FDA-Public Use
  Company Number: CA-ROCHE-1031606

PATIENT
  Age: 76 Year
  Sex: Male

DRUGS (14)
  1. RANIBIZUMAB [Suspect]
     Indication: DIABETIC RETINAL OEDEMA
     Route: 050
     Dates: start: 20111207
  2. RANIBIZUMAB [Suspect]
     Route: 050
     Dates: start: 20120124
  3. FUROSEMIDE [Concomitant]
     Route: 065
     Dates: start: 1990
  4. METOPROLOL [Concomitant]
     Route: 065
     Dates: start: 1990
  5. RAMIPRIL [Concomitant]
     Route: 065
     Dates: start: 1990
  6. FLOMAX [Concomitant]
     Route: 065
     Dates: start: 2002
  7. GLUCOBAY [Concomitant]
     Route: 065
     Dates: start: 2000
  8. ASA [Concomitant]
     Route: 065
     Dates: start: 1990
  9. LIPITOR [Concomitant]
     Route: 065
     Dates: start: 1990
  10. PLAVIX [Concomitant]
     Route: 065
     Dates: start: 1990
  11. GLYBURIDE [Concomitant]
     Route: 065
     Dates: start: 2000
  12. PROCAL [Concomitant]
     Route: 065
     Dates: start: 2006
  13. METFORMIN [Concomitant]
     Route: 065
     Dates: start: 2000
  14. JANUVIA [Concomitant]
     Route: 065
     Dates: start: 2000

REACTIONS (2)
  - Hypokalaemia [Recovered/Resolved]
  - Colitis ischaemic [Recovered/Resolved]
